FAERS Safety Report 20705217 (Version 1)
Quarter: 2022Q2

REPORT INFORMATION
  Report Type: Spontaneous
  Country: ID (occurrence: ID)
  Receive Date: 20220413
  Receipt Date: 20220413
  Transmission Date: 20220721
  Serious: Yes (Death, Other)
  Sender: FDA-Public Use
  Company Number: ID-009507513-2204IDN000836

PATIENT
  Sex: Female

DRUGS (1)
  1. KEYTRUDA [Suspect]
     Active Substance: PEMBROLIZUMAB
     Dosage: UNK
     Dates: start: 20220331, end: 20220331

REACTIONS (3)
  - Death [Fatal]
  - Chills [Unknown]
  - Body temperature increased [Unknown]

NARRATIVE: CASE EVENT DATE: 20220331
